FAERS Safety Report 14147116 (Version 3)
Quarter: 2018Q4

REPORT INFORMATION
  Report Type: Spontaneous
  Country: US (occurrence: US)
  Receive Date: 20171031
  Receipt Date: 20181010
  Transmission Date: 20190204
  Serious: No
  Sender: FDA-Public Use
  Company Number: US-ROCHE-1966179

PATIENT
  Age: 71 Year
  Sex: Male

DRUGS (20)
  1. METFORMIN HYDROCHLORIDE. [Concomitant]
     Active Substance: METFORMIN HYDROCHLORIDE
     Route: 065
  2. ESBRIET [Suspect]
     Active Substance: PIRFENIDONE
     Dosage: TAKE 1 TAB BY MOUTH 3X A DAY
     Route: 048
     Dates: start: 2017
  3. ESBRIET [Suspect]
     Active Substance: PIRFENIDONE
     Route: 048
     Dates: start: 20180719
  4. ATORVASTATIN [Concomitant]
     Active Substance: ATORVASTATIN
     Route: 065
  5. ASPIRIN. [Concomitant]
     Active Substance: ASPIRIN
     Route: 065
  6. TYLENOL [Concomitant]
     Active Substance: ACETAMINOPHEN
     Route: 065
  7. LORAZEPAM. [Concomitant]
     Active Substance: LORAZEPAM
     Route: 065
  8. LOSARTAN POTASSIUM. [Concomitant]
     Active Substance: LOSARTAN POTASSIUM
     Route: 065
  9. OMEPRAZOLE. [Concomitant]
     Active Substance: OMEPRAZOLE
     Route: 065
  10. ESBRIET [Suspect]
     Active Substance: PIRFENIDONE
     Indication: IDIOPATHIC PULMONARY FIBROSIS
     Dosage: 1 TABLET BY MOUTH THREE TIMES A DAY
     Route: 048
     Dates: start: 20170626
  11. ESBRIET [Suspect]
     Active Substance: PIRFENIDONE
     Dosage: 1 TABLET BY MOUTH THREE TIMES A DAY
     Route: 048
     Dates: start: 201706
  12. IBUPROFEN. [Concomitant]
     Active Substance: IBUPROFEN
     Route: 065
  13. SERTRALINE HCL [Concomitant]
     Active Substance: SERTRALINE HYDROCHLORIDE
     Route: 065
  14. ESBRIET [Suspect]
     Active Substance: PIRFENIDONE
     Dosage: 1 TABLET THRICE A DAY FOR 1 WEEK THEN 2 TABLETS THRICE A DAY FOR 1 WEEK AND THEN 3 TABLETS THRICE A
     Route: 048
     Dates: start: 20170628
  15. ESBRIET [Suspect]
     Active Substance: PIRFENIDONE
     Dosage: TAKE 1 TABLET BY MOUTH TWICE A DAY
     Route: 048
     Dates: start: 20170626
  16. ESBRIET [Suspect]
     Active Substance: PIRFENIDONE
     Route: 048
  17. LORATADINE. [Concomitant]
     Active Substance: LORATADINE
     Route: 065
  18. AMLODIPINE BENZENESULFONATE [Concomitant]
     Route: 065
  19. TRAZODONE HYDROCHLORIDE. [Concomitant]
     Active Substance: TRAZODONE HYDROCHLORIDE
     Route: 065
  20. BISOPROLOL FUMARAT [Concomitant]
     Active Substance: BISOPROLOL FUMARATE
     Route: 065

REACTIONS (10)
  - Abdominal pain upper [Unknown]
  - Pulmonary function test decreased [Not Recovered/Not Resolved]
  - Dry skin [Unknown]
  - Nausea [Unknown]
  - Gastric disorder [Not Recovered/Not Resolved]
  - Constipation [Not Recovered/Not Resolved]
  - Abdominal discomfort [Not Recovered/Not Resolved]
  - Diarrhoea [Not Recovered/Not Resolved]
  - Photosensitivity reaction [Not Recovered/Not Resolved]
  - Dyspnoea [Unknown]

NARRATIVE: CASE EVENT DATE: 20170823
